FAERS Safety Report 9783241 (Version 2)
Quarter: 2014Q1

REPORT INFORMATION
  Report Type: Spontaneous
  Country: US (occurrence: None)
  Receive Date: 20131223
  Receipt Date: 20140106
  Transmission Date: 20141002
  Serious: Yes (Hospitalization)
  Sender: FDA-Public Use
  Company Number: 2013AP010433

PATIENT
  Sex: Female

DRUGS (1)
  1. VERAPAMIL HYDROCHLORIDE [Suspect]
     Dates: start: 20130825, end: 20131104

REACTIONS (7)
  - Hypertension [None]
  - Headache [None]
  - Dizziness [None]
  - Gait disturbance [None]
  - Nasal congestion [None]
  - Sinus congestion [None]
  - Drug ineffective [None]
